FAERS Safety Report 15836252 (Version 1)
Quarter: 2019Q1

REPORT INFORMATION
  Report Type: Spontaneous
  Country: US (occurrence: US)
  Receive Date: 20190116
  Receipt Date: 20190116
  Transmission Date: 20190417
  Serious: No
  Sender: FDA-Public Use
  Company Number: None

PATIENT
  Sex: Female
  Weight: 76.5 kg

DRUGS (8)
  1. GLIPZIDE [Concomitant]
     Active Substance: GLIPIZIDE
  2. DICLOFENAC SODIUM. [Concomitant]
     Active Substance: DICLOFENAC SODIUM
  3. FAMOTIDINE. [Concomitant]
     Active Substance: FAMOTIDINE
  4. ROSUVASTATIN. [Concomitant]
     Active Substance: ROSUVASTATIN
  5. LISINOPRIL. [Concomitant]
     Active Substance: LISINOPRIL
  6. ATORVASTATIN 40MG [Suspect]
     Active Substance: ATORVASTATIN
     Indication: BLOOD CHOLESTEROL
     Dosage: ?          QUANTITY:1 TABLET(S);?
     Route: 048
     Dates: start: 20170404, end: 20170407
  7. DULOXETINE. [Concomitant]
     Active Substance: DULOXETINE
  8. METOPROLOL ER [Concomitant]
     Active Substance: METOPROLOL SUCCINATE

REACTIONS (7)
  - Insurance issue [None]
  - Fatigue [None]
  - Nausea [None]
  - Vomiting [None]
  - Somnolence [None]
  - Headache [None]
  - Myalgia [None]
